FAERS Safety Report 4970212-7 (Version None)
Quarter: 2006Q2

REPORT INFORMATION
  Report Type: 
  Country: None (occurrence: None)
  Receive Date: 20060406
  Receipt Date: 20060301
  Transmission Date: 20061013
  Serious: Yes (Death)
  Sender: FDA-Public Use
  Company Number: 200611397BCC

PATIENT
  Sex: Male
  Weight: 83.9154 kg

DRUGS (2)
  1. ALKA-SELTZER PLUS EFFERVESCENT COLD [Suspect]
     Indication: DYSPEPSIA
     Dosage: ORAL
     Route: 048
  2. LEVAQUIN [Concomitant]

REACTIONS (3)
  - CARDIAC DISORDER [None]
  - DYSPNOEA [None]
  - LUNG DISORDER [None]
